FAERS Safety Report 13910062 (Version 1)
Quarter: 2017Q3

REPORT INFORMATION
  Report Type: Spontaneous
  Country: VE (occurrence: VE)
  Receive Date: 20170822
  Receipt Date: 20170822
  Transmission Date: 20171127
  Serious: Yes (Life-Threatening, Disabling)
  Sender: FDA-Public Use
  Company Number: None

PATIENT
  Age: 57 Year
  Sex: Female
  Weight: 69 kg

DRUGS (5)
  1. AMOXICILLIN. [Concomitant]
     Active Substance: AMOXICILLIN
  2. CARBONATO DE BISMUTO [Concomitant]
  3. NEEDS TRANSLATION-LEVOFLOXACINA [Suspect]
     Active Substance: LEVOFLOXACIN SODIUM
     Indication: HELICOBACTER INFECTION
     Dosage: ?          QUANTITY:1 CAPSULE(S);?
     Route: 048
     Dates: start: 20170817, end: 20170821
  4. ESOMEPRAZOL [Concomitant]
     Active Substance: ESOMEPRAZOLE
  5. CEDNIDAZOL [Concomitant]

REACTIONS (24)
  - Disturbance in attention [None]
  - Myalgia [None]
  - Vulvovaginal burning sensation [None]
  - Asthenia [None]
  - Dyspnoea [None]
  - Pyrexia [None]
  - Vision blurred [None]
  - Chromaturia [None]
  - Cough [None]
  - Abdominal pain [None]
  - Pain in extremity [None]
  - Paraesthesia [None]
  - Back pain [None]
  - Gait disturbance [None]
  - Palpitations [None]
  - Confusional state [None]
  - Loss of consciousness [None]
  - Tendon pain [None]
  - Urine output decreased [None]
  - Dysuria [None]
  - Blister [None]
  - Chest pain [None]
  - Dizziness [None]
  - Faeces discoloured [None]

NARRATIVE: CASE EVENT DATE: 20170817
